FAERS Safety Report 13410671 (Version 2)
Quarter: 2017Q4

REPORT INFORMATION
  Report Type: Spontaneous
  Country: US (occurrence: US)
  Receive Date: 20170406
  Receipt Date: 20171123
  Transmission Date: 20180320
  Serious: No
  Sender: FDA-Public Use
  Company Number: US-JNJFOC-20170307617

PATIENT
  Sex: Male

DRUGS (9)
  1. RISPERDAL [Suspect]
     Active Substance: RISPERIDONE
     Indication: ATTENTION DEFICIT/HYPERACTIVITY DISORDER
     Dosage: VARYING FREQUENCIES INCLUDED (ONCE DAILY AND TWICE DAILY)
     Route: 048
     Dates: start: 20050927, end: 20061201
  2. RISPERDAL [Suspect]
     Active Substance: RISPERIDONE
     Indication: BIPOLAR DISORDER
     Dosage: VARYING FREQUENCIES INCLUDED (ONCE DAILY AND TWICE DAILY)
     Route: 048
     Dates: start: 20050927, end: 20061201
  3. RISPERDAL [Suspect]
     Active Substance: RISPERIDONE
     Indication: BIPOLAR DISORDER
     Dosage: VARYING DOSES OF 0.5 MG AND 01 MG AND VARYING FREQUENCIES INCLUDED (ONCE DAILY AND TWICE DAILY)
     Route: 048
     Dates: start: 20040505, end: 20050428
  4. RISPERDAL [Suspect]
     Active Substance: RISPERIDONE
     Indication: BIPOLAR DISORDER
     Dosage: VARYING DOSES 0.25 MG, 0.5 MG AND 01 MG AND VARYING FREQUENCY(UNSPECIFIED, ONCE DAILY, TWICE DAILY)
     Route: 048
     Dates: start: 20071121, end: 20080926
  5. RISPERDAL [Suspect]
     Active Substance: RISPERIDONE
     Indication: ABNORMAL BEHAVIOUR
     Dosage: VARYING FREQUENCIES INCLUDED (ONCE DAILY AND TWICE DAILY)
     Route: 048
     Dates: start: 20050927, end: 20061201
  6. RISPERDAL [Suspect]
     Active Substance: RISPERIDONE
     Indication: ABNORMAL BEHAVIOUR
     Dosage: VARYING DOSES OF 0.5 MG AND 01 MG AND VARYING FREQUENCIES INCLUDED (ONCE DAILY AND TWICE DAILY)
     Route: 048
     Dates: start: 20040505, end: 20050428
  7. RISPERDAL [Suspect]
     Active Substance: RISPERIDONE
     Indication: ATTENTION DEFICIT/HYPERACTIVITY DISORDER
     Dosage: VARYING DOSES OF 0.5 MG AND 01 MG AND VARYING FREQUENCIES INCLUDED (ONCE DAILY AND TWICE DAILY)
     Route: 048
     Dates: start: 20040505, end: 20050428
  8. RISPERDAL [Suspect]
     Active Substance: RISPERIDONE
     Indication: ATTENTION DEFICIT/HYPERACTIVITY DISORDER
     Dosage: VARYING DOSES 0.25 MG, 0.5 MG AND 01 MG AND VARYING FREQUENCY(UNSPECIFIED, ONCE DAILY, TWICE DAILY)
     Route: 048
     Dates: start: 20071121, end: 20080926
  9. RISPERDAL [Suspect]
     Active Substance: RISPERIDONE
     Indication: ABNORMAL BEHAVIOUR
     Dosage: VARYING DOSES 0.25 MG, 0.5 MG AND 01 MG AND VARYING FREQUENCY(UNSPECIFIED, ONCE DAILY, TWICE DAILY)
     Route: 048
     Dates: start: 20071121, end: 20080926

REACTIONS (2)
  - Emotional disorder [Unknown]
  - Gynaecomastia [Unknown]
